FAERS Safety Report 12398549 (Version 3)
Quarter: 2016Q3

REPORT INFORMATION
  Report Type: Spontaneous
  Country: US (occurrence: US)
  Receive Date: 20160524
  Receipt Date: 20160824
  Transmission Date: 20161109
  Serious: Yes (Hospitalization, Other)
  Sender: FDA-Public Use
  Company Number: US-BAYER-2016-097083

PATIENT
  Age: 21 Year
  Sex: Female
  Weight: 50.79 kg

DRUGS (9)
  1. MIRENA [Suspect]
     Active Substance: LEVONORGESTREL
     Indication: CONTRACEPTION
     Dosage: 20 MCG/24HR, CONT
     Route: 015
     Dates: start: 20111012, end: 20141015
  2. FERROUS SULFATE. [Concomitant]
     Active Substance: FERROUS SULFATE
  3. ZOFRAN [Concomitant]
     Active Substance: ONDANSETRON HYDROCHLORIDE
  4. ZOSYN [Concomitant]
     Active Substance: PIPERACILLIN SODIUM\TAZOBACTAM SODIUM
  5. ALUMINIUM HYDROXI W/MAGNESIUM HYDROX/SIMETHIC [Concomitant]
  6. TORADOL [Concomitant]
     Active Substance: KETOROLAC TROMETHAMINE
  7. ANCEF [Concomitant]
     Active Substance: CEFAZOLIN SODIUM
     Dosage: 2 G, UNK
  8. HYDROCODONE BITARTRATE AND ACETAMINOPHEN [Concomitant]
     Active Substance: ACETAMINOPHEN\HYDROCODONE BITARTRATE
     Indication: PAIN
  9. PYRIDOXINE [Concomitant]
     Active Substance: PYRIDOXINE

REACTIONS (12)
  - Lactation disorder [None]
  - Gastritis [None]
  - Haematemesis [None]
  - Device issue [None]
  - Abdominal pain [None]
  - Pregnancy with contraceptive device [None]
  - Activities of daily living impaired [None]
  - Drug ineffective [None]
  - Subchorionic haemorrhage [None]
  - Uterine perforation [None]
  - Cholelithiasis [None]
  - Biliary dilatation [None]

NARRATIVE: CASE EVENT DATE: 20111206
